FAERS Safety Report 8297342-9 (Version None)
Quarter: 2012Q2

REPORT INFORMATION
  Report Type: 
  Country: None (occurrence: None)
  Receive Date: 20120417
  Receipt Date: 20120405
  Transmission Date: 20120825
  Serious: Yes (Life-Threatening, Hospitalization, Other)
  Sender: FDA-Public Use
  Company Number: 2012MA003805

PATIENT
  Age: 40 Year
  Sex: Male
  Weight: 70.489 kg

DRUGS (3)
  1. NALTREXONE HYDROCHLORIDE [Concomitant]
  2. OXYMORPHONE HYDROCHLORIDE [Suspect]
     Dosage: 30 MG;X1;PO
     Route: 048
     Dates: start: 20120315, end: 20120315
  3. OXYMORPHONE HYDROCHLORIDE [Suspect]
     Dosage: 30 MG;PO
     Route: 048

REACTIONS (12)
  - PAIN [None]
  - ELECTROCARDIOGRAM QT SHORTENED [None]
  - RESPIRATORY ARREST [None]
  - ELECTROCARDIOGRAM ST SEGMENT ELEVATION [None]
  - SHOCK [None]
  - TROPONIN INCREASED [None]
  - STRESS [None]
  - GUN SHOT WOUND [None]
  - CARDIAC ARREST [None]
  - GAIT DISTURBANCE [None]
  - HAEMORRHAGE [None]
  - ACIDOSIS [None]
